FAERS Safety Report 5515610-8 (Version None)
Quarter: 2007Q4

REPORT INFORMATION
  Report Type: 
  Country: None (occurrence: None)
  Receive Date: 20071113
  Receipt Date: 20070626
  Transmission Date: 20080405
  Serious: No
  Sender: FDA-Public Use
  Company Number: A0661073A

PATIENT
  Sex: Female

DRUGS (4)
  1. COREG [Suspect]
     Indication: HYPERTENSION
     Dosage: 12.5MG SEE DOSAGE TEXT
     Route: 048
     Dates: start: 20030101, end: 20070101
  2. COREG CR [Suspect]
     Indication: HYPERTENSION
     Dosage: 40MG PER DAY
     Route: 048
     Dates: start: 20070401
  3. BENICAR HCT [Concomitant]
     Dates: start: 20061201
  4. MICARDIS [Concomitant]
     Dates: end: 20061201

REACTIONS (6)
  - DRUG INEFFECTIVE [None]
  - HYPERSOMNIA [None]
  - HYPOTENSION [None]
  - PHOTOSENSITIVITY REACTION [None]
  - PRURITUS [None]
  - RASH MACULAR [None]
